FAERS Safety Report 23197784 (Version 1)
Quarter: 2023Q4

REPORT INFORMATION
  Report Type: Spontaneous
  Country: US (occurrence: US)
  Receive Date: 20231117
  Receipt Date: 20231117
  Transmission Date: 20240109
  Serious: No
  Sender: FDA-Public Use
  Company Number: US-TAIHOP-2023-009342

PATIENT
  Sex: Female

DRUGS (1)
  1. LONSURF [Suspect]
     Active Substance: TIPIRACIL HYDROCHLORIDE\TRIFLURIDINE
     Indication: Colon cancer
     Dosage: FORM STRENGTHS: 15 MG AND 20 MG; CURRENT CYCLE UNKNOWN
     Route: 048
     Dates: start: 202309

REACTIONS (1)
  - Product dose omission in error [Unknown]
